FAERS Safety Report 8018667-8 (Version None)
Quarter: 2012Q1

REPORT INFORMATION
  Report Type: 
  Country: None (occurrence: None)
  Receive Date: 20120103
  Receipt Date: 20120103
  Transmission Date: 20120608
  Serious: No
  Sender: FDA-Public Use
  Company Number: None

PATIENT
  Sex: Male

DRUGS (1)
  1. LISINOPRIL AND HYDROCHLOROTHIAZIDE [Suspect]
     Indication: HYPERTENSION
     Dosage: 10/12.5MG
     Route: 048
     Dates: start: 20111220, end: 20111229

REACTIONS (4)
  - TREMOR [None]
  - PRODUCT SUBSTITUTION ISSUE [None]
  - EAR DISCOMFORT [None]
  - HEADACHE [None]
